FAERS Safety Report 8393379-X (Version None)
Quarter: 2012Q2

REPORT INFORMATION
  Report Type: 
  Country: None (occurrence: None)
  Receive Date: 20120529
  Receipt Date: 20120518
  Transmission Date: 20120825
  Serious: Yes (Other)
  Sender: FDA-Public Use
  Company Number: JP-VERTEX PHARMACEUTICALS INC.-AE-2012-004897

PATIENT
  Age: 61 Year
  Sex: Male

DRUGS (13)
  1. RIBAVIRIN [Concomitant]
     Route: 048
     Dates: start: 20120331
  2. RIBAVIRIN [Concomitant]
     Indication: HEPATITIS C
     Route: 048
     Dates: start: 20120210, end: 20120302
  3. RIBAVIRIN [Concomitant]
     Route: 048
     Dates: start: 20120502
  4. RIBAVIRIN [Concomitant]
     Route: 048
     Dates: start: 20120323, end: 20120330
  5. ALLOPURINOL [Concomitant]
     Route: 048
     Dates: start: 20120220
  6. PEG-INTRON [Concomitant]
     Route: 051
     Dates: start: 20120210
  7. TELAVIC (TELAPREVIR) [Suspect]
     Route: 048
     Dates: start: 20120220, end: 20120223
  8. RIBAVIRIN [Concomitant]
     Route: 048
     Dates: start: 20120330, end: 20120412
  9. TALION [Concomitant]
     Route: 048
     Dates: start: 20120222
  10. TELAVIC (TELAPREVIR) [Suspect]
     Indication: HEPATITIS C
     Route: 048
     Dates: start: 20120210, end: 20120217
  11. RIBAVIRIN [Concomitant]
     Route: 048
     Dates: start: 20120303, end: 20120309
  12. RIBAVIRIN [Concomitant]
     Route: 048
     Dates: start: 20120413, end: 20120501
  13. URSO 250 [Concomitant]
     Route: 048

REACTIONS (1)
  - RENAL DISORDER [None]
